FAERS Safety Report 18591076 (Version 1)
Quarter: 2020Q4

REPORT INFORMATION
  Report Type: Report from Study
  Country: CA (occurrence: CA)
  Receive Date: 20201208
  Receipt Date: 20201208
  Transmission Date: 20210114
  Serious: Yes (Hospitalization, Other)
  Sender: FDA-Public Use
  Company Number: CA-JNJFOC-20200610786

PATIENT
  Age: 27 Year
  Sex: Female
  Weight: 60.84 kg

DRUGS (4)
  1. STELARA [Suspect]
     Active Substance: USTEKINUMAB
     Dosage: ON 08-SEP-2020, THE PATIENT RECEIVED HER 4TH INJECTION OF 90 MG OF STELARA
     Route: 058
     Dates: start: 20200828
  2. STELARA [Suspect]
     Active Substance: USTEKINUMAB
     Indication: COLITIS ULCERATIVE
     Route: 042
     Dates: start: 20200403
  3. STELARA [Suspect]
     Active Substance: USTEKINUMAB
     Dosage: ONSET DATE ALSO REPORTED AS 04-MAR-2020
     Route: 058
     Dates: start: 20200828
  4. STELARA [Suspect]
     Active Substance: USTEKINUMAB
     Route: 058
     Dates: start: 2020

REACTIONS (10)
  - White blood cell count increased [Not Recovered/Not Resolved]
  - Abdominal pain [Recovering/Resolving]
  - Neutrophil count increased [Not Recovered/Not Resolved]
  - Exposure during pregnancy [Not Recovered/Not Resolved]
  - Colitis ulcerative [Recovering/Resolving]
  - Off label use [Unknown]
  - Dysphagia [Unknown]
  - Drug ineffective [Unknown]
  - Bacterial vaginosis [Recovering/Resolving]
  - Product use issue [Unknown]

NARRATIVE: CASE EVENT DATE: 20200523
